FAERS Safety Report 10721834 (Version 1)
Quarter: 2015Q1

REPORT INFORMATION
  Report Type: Spontaneous
  Country: US (occurrence: US)
  Receive Date: 20150119
  Receipt Date: 20150119
  Transmission Date: 20150721
  Serious: No
  Sender: FDA-Public Use
  Company Number: US-BAUSCH-BL-2014-003911

PATIENT
  Age: 84 Year
  Sex: Female
  Weight: 81.72 kg

DRUGS (1)
  1. ALAWAY [Suspect]
     Active Substance: KETOTIFEN FUMARATE
     Indication: EYE DISORDER
     Route: 047
     Dates: start: 201408, end: 20140814

REACTIONS (5)
  - Lethargy [Unknown]
  - Asthenia [Recovering/Resolving]
  - Somnolence [Unknown]
  - Pain [Unknown]
  - Asthenia [Unknown]

NARRATIVE: CASE EVENT DATE: 201408
